FAERS Safety Report 5017413-X (Version None)
Quarter: 2006Q2

REPORT INFORMATION
  Report Type: 
  Country: None (occurrence: None)
  Receive Date: 20060414
  Receipt Date: 20060224
  Transmission Date: 20061013
  Serious: No
  Sender: FDA-Public Use
  Company Number: 2006SP000942

PATIENT
  Age: 39 Year
  Sex: Female
  Weight: 59.8748 kg

DRUGS (7)
  1. LUNESTA [Suspect]
     Indication: INSOMNIA
     Dosage: 2 MG; HS; ORAL
     Route: 048
     Dates: start: 20060223, end: 20060224
  2. POTASSIUM CHLORIDE [Concomitant]
  3. CLONIDINE [Concomitant]
  4. TEGASEROD [Concomitant]
  5. ROBAXIN [Concomitant]
  6. HYDROCHLOROTHIAZIDE [Concomitant]
  7. GLUCOPHAGE [Concomitant]

REACTIONS (3)
  - CONFUSIONAL STATE [None]
  - DYSGEUSIA [None]
  - INSOMNIA [None]
